FAERS Safety Report 21923324 (Version 1)
Quarter: 2023Q1

REPORT INFORMATION
  Report Type: Report from Study
  Country: US (occurrence: US)
  Receive Date: 20230129
  Receipt Date: 20230129
  Transmission Date: 20230418
  Serious: Yes (Death)
  Sender: FDA-Public Use
  Company Number: US-ABBVIE-4286866

PATIENT
  Sex: Female

DRUGS (37)
  1. VENCLEXTA [Suspect]
     Active Substance: VENETOCLAX
     Indication: White blood cell disorder
     Dosage: WEEK 4
     Route: 048
  2. VENCLEXTA [Suspect]
     Active Substance: VENETOCLAX
     Indication: White blood cell disorder
     Dosage: WEEK 2
     Route: 048
  3. VENCLEXTA [Suspect]
     Active Substance: VENETOCLAX
     Indication: White blood cell disorder
     Dosage: WEEK 1
     Route: 048
  4. VENCLEXTA [Suspect]
     Active Substance: VENETOCLAX
     Indication: White blood cell disorder
     Dosage: WEEK 3
     Route: 048
  5. SERTRALINE HYDROCHLORIDE [Concomitant]
     Active Substance: SERTRALINE HYDROCHLORIDE
     Indication: Product used for unknown indication
     Dosage: TABLET ORAL DAILY (DOSAGE INCREASED TO 150MG)
     Route: 048
  6. OMEPRAZOLE [Concomitant]
     Active Substance: OMEPRAZOLE
     Indication: Product used for unknown indication
     Dosage: 1 P.O.Q DAY
     Route: 048
  7. Advair Diskus IN [Concomitant]
     Indication: Product used for unknown indication
     Dosage: AEROSOL POWDER BREATH ACTIVATED INHALATION
  8. IMBRUVICA [Suspect]
     Active Substance: IBRUTINIB
     Indication: Product used for unknown indication
     Route: 048
  9. Metolazone 2.5 mg [Concomitant]
     Indication: Product used for unknown indication
     Route: 048
  10. HYDREA [Concomitant]
     Active Substance: HYDROXYUREA
     Indication: Product used for unknown indication
     Route: 048
  11. HYDREA [Concomitant]
     Active Substance: HYDROXYUREA
     Indication: Product used for unknown indication
     Dosage: 1 PO Q DAY
     Route: 048
  12. Klor-Con M 20 Milliequivalents [Concomitant]
     Indication: Product used for unknown indication
     Dosage: 1 P.O Q DAY
     Route: 048
  13. Basaglar Kwikpen U-100 Insulin [Concomitant]
     Indication: Product used for unknown indication
     Dosage: 75 UNITS AT BEDTIME
     Route: 058
  14. Dapsone 100 mg [Concomitant]
     Indication: Product used for unknown indication
     Dosage: 1 P.O.Q DAY
     Route: 048
  15. Dapsone 100 mg [Concomitant]
     Indication: Product used for unknown indication
     Route: 048
  16. TIZANIDINE [Concomitant]
     Active Substance: TIZANIDINE
     Indication: Product used for unknown indication
     Dosage: PRN
  17. ATENOLOL [Concomitant]
     Active Substance: ATENOLOL
     Indication: Product used for unknown indication
     Dosage: 1 P.O.Q DAY
     Route: 048
  18. ONDANSETRON [Concomitant]
     Active Substance: ONDANSETRON
     Indication: Nausea
     Dosage: TIME INTERVAL: 0.33333333 DAYS: 1 P.O.Q 8 HOURS (TID)
     Route: 048
  19. GABAPENTIN [Concomitant]
     Active Substance: GABAPENTIN
     Indication: Product used for unknown indication
     Dosage: 1-2 TABLETS AT BEDTIME
     Route: 048
  20. ASPIRIN [Concomitant]
     Active Substance: ASPIRIN
     Indication: Product used for unknown indication
     Route: 048
  21. LEVOFLOXACIN [Concomitant]
     Active Substance: LEVOFLOXACIN
     Indication: Product used for unknown indication
     Dosage: 1 PO Q DAY
     Route: 048
  22. ALLOPURINOL [Concomitant]
     Active Substance: ALLOPURINOL
     Indication: Product used for unknown indication
     Dosage: 1 P.O Q. DAY
     Route: 048
  23. Vitamin D2 1250 unit [Concomitant]
     Indication: Product used for unknown indication
     Route: 048
  24. SPIRONOLACTONE [Concomitant]
     Active Substance: SPIRONOLACTONE
     Indication: Product used for unknown indication
     Dosage: 1 P.O.Q DAY
     Route: 048
  25. XANAX [Concomitant]
     Active Substance: ALPRAZOLAM
     Indication: Product used for unknown indication
     Dosage: 1 P.O.Q DAY DAT BEDTIME (HS)/PM
     Route: 048
  26. Synthroid 125 Microgram [Concomitant]
     Indication: Product used for unknown indication
     Route: 048
  27. Senna 8.6 mg [Concomitant]
     Indication: Constipation
     Dosage: 2 TABLETS
     Route: 048
  28. ALBUTEROL SULFATE [Concomitant]
     Active Substance: ALBUTEROL SULFATE
     Indication: Product used for unknown indication
     Dosage: 1POQ DAY
  29. Diflucan 100 mg [Concomitant]
     Indication: Product used for unknown indication
     Route: 048
  30. Diflucan 100 mg [Concomitant]
     Indication: Product used for unknown indication
     Route: 048
  31. FUROSEMIDE [Concomitant]
     Active Substance: FUROSEMIDE
     Indication: Product used for unknown indication
     Dosage: TAKE 2 TABS EACH MORNING
     Route: 048
  32. Repatha Pushtronex 420 mg [Concomitant]
     Indication: Blood cholesterol abnormal
     Route: 058
  33. ACYCLOVIR [Concomitant]
     Active Substance: ACYCLOVIR
     Indication: Product used for unknown indication
     Dosage: 1 P.O.Q. DAY
     Route: 048
  34. Nystatin 100000 units [Concomitant]
     Indication: Product used for unknown indication
     Dosage: 5CC SWISH AND SPIT QID
     Route: 048
  35. TRAMADOL [Concomitant]
     Active Substance: TRAMADOL
     Indication: Product used for unknown indication
     Dosage: PRN
     Route: 048
  36. Prochlorperazine maleate 10 MG [Concomitant]
     Indication: Product used for unknown indication
     Dosage: 1 P.O.Q 4 TO 6 HOURS
     Route: 048
  37. PLAVIX [Concomitant]
     Active Substance: CLOPIDOGREL BISULFATE
     Indication: Product used for unknown indication
     Dosage: 1 P.O.Q DAY
     Route: 048

REACTIONS (2)
  - Death [Fatal]
  - Off label use [Unknown]
